FAERS Safety Report 16444738 (Version 2)
Quarter: 2019Q2

REPORT INFORMATION
  Report Type: Spontaneous
  Country: JP (occurrence: JP)
  Receive Date: 20190618
  Receipt Date: 20190628
  Transmission Date: 20190711
  Serious: Yes (Life-Threatening)
  Sender: FDA-Public Use
  Company Number: JP-CELGENEUS-JPN-20190605862

PATIENT
  Age: 75 Year
  Sex: Female
  Weight: 52.7 kg

DRUGS (9)
  1. NOVAMIN [Concomitant]
     Indication: PANCREATIC CARCINOMA METASTATIC
     Dosage: 15 MILLIGRAM
     Route: 048
     Dates: start: 20190514, end: 20190523
  2. LASIX [Concomitant]
     Active Substance: FUROSEMIDE
     Indication: PANCREATIC CARCINOMA METASTATIC
     Dosage: 20 MILLIGRAM
     Route: 048
     Dates: start: 20190521, end: 20190523
  3. GEMCITABINE [Suspect]
     Active Substance: GEMCITABINE\GEMCITABINE HYDROCHLORIDE
     Indication: PANCREATIC CARCINOMA METASTATIC
     Dosage: 1350 MILLIGRAM
     Route: 041
     Dates: start: 20190520, end: 20190520
  4. RINDERON [Concomitant]
     Indication: PANCREATIC CARCINOMA METASTATIC
     Dosage: 2 MILLIGRAM
     Route: 041
     Dates: start: 20190521, end: 20190530
  5. ABRAXANE [Suspect]
     Active Substance: PACLITAXEL
     Indication: PANCREATIC CARCINOMA METASTATIC
     Dosage: 170 MILLIGRAM
     Route: 041
     Dates: start: 20190520, end: 20190520
  6. OXYCODONE HYDROCHLORIDE. [Concomitant]
     Active Substance: OXYCODONE HYDROCHLORIDE
     Indication: ABDOMINAL PAIN
     Route: 065
  7. OXYCONTIN [Concomitant]
     Active Substance: OXYCODONE HYDROCHLORIDE
     Indication: CANCER PAIN
     Dosage: 10 MILLIGRAM
     Route: 048
     Dates: start: 20190514, end: 20190523
  8. PACKED RED BLOOD CELL [Concomitant]
     Active Substance: HUMAN RED BLOOD CELL
     Indication: PRODUCT USED FOR UNKNOWN INDICATION
     Route: 065
     Dates: start: 20190517, end: 20190517
  9. INSULIN [Concomitant]
     Active Substance: INSULIN NOS
     Indication: PRODUCT USED FOR UNKNOWN INDICATION
     Route: 065

REACTIONS (5)
  - Hyperammonaemia [Recovered/Resolved]
  - Malaise [Unknown]
  - Nausea [Unknown]
  - Febrile neutropenia [Recovering/Resolving]
  - Altered state of consciousness [Recovered/Resolved]

NARRATIVE: CASE EVENT DATE: 20190522
